FAERS Safety Report 5270492-7 (Version None)
Quarter: 2007Q1

REPORT INFORMATION
  Report Type: 
  Country: None (occurrence: None)
  Receive Date: 20070320
  Receipt Date: 20070313
  Transmission Date: 20070707
  Serious: Yes (Death, Hospitalization)
  Sender: FDA-Public Use
  Company Number: NL-MERCK-0703NLD00010

PATIENT
  Sex: Female

DRUGS (1)
  1. ZETIA [Suspect]
     Route: 065

REACTIONS (2)
  - DEATH [None]
  - LIVER DISORDER [None]
